APPROVED DRUG PRODUCT: VANCERIL DOUBLE STRENGTH
Active Ingredient: BECLOMETHASONE DIPROPIONATE
Strength: 0.084MG/INH
Dosage Form/Route: AEROSOL, METERED;INHALATION
Application: N020486 | Product #001
Applicant: SCHERING CORP
Approved: Dec 24, 1996 | RLD: No | RS: No | Type: DISCN